FAERS Safety Report 5997681-8 (Version None)
Quarter: 2008Q4

REPORT INFORMATION
  Report Type: 
  Country: None (occurrence: None)
  Receive Date: 20081212
  Receipt Date: 20081119
  Transmission Date: 20090506
  Serious: No
  Sender: FDA-Public Use
  Company Number: US-ABBOTT-08P-163-0488479-00

PATIENT
  Sex: Female

DRUGS (1)
  1. HUMIRA [Suspect]
     Indication: PSORIASIS
     Dosage: FIRST INJECTIONS WERE ON 14-NOV 2008
     Dates: start: 20081114

REACTIONS (2)
  - LYMPHADENOPATHY [None]
  - VULVOVAGINAL DISCOMFORT [None]
